FAERS Safety Report 11969498 (Version 1)
Quarter: 2016Q1

REPORT INFORMATION
  Report Type: Spontaneous
  Country: US (occurrence: US)
  Receive Date: 20160128
  Receipt Date: 20160128
  Transmission Date: 20160526
  Serious: Yes (Life-Threatening, Hospitalization, Other)
  Sender: FDA-Public Use
  Company Number: US-WATSON-2016-01224

PATIENT
  Age: 32 Month
  Sex: Male

DRUGS (1)
  1. CLONIDINE. [Suspect]
     Active Substance: CLONIDINE
     Indication: ACCIDENTAL OVERDOSE
     Dosage: APPROXIMATELY 20 CLONIDINE 0.1 MG TABLETS
     Route: 048

REACTIONS (6)
  - Miosis [Recovered/Resolved]
  - Accidental overdose [Recovered/Resolved]
  - Coma [Recovered/Resolved]
  - Bradycardia [Recovered/Resolved]
  - Hypothermia [Recovered/Resolved]
  - Hypopnoea [Recovered/Resolved]
